FAERS Safety Report 17967862 (Version 1)
Quarter: 2020Q3

REPORT INFORMATION
  Report Type: Spontaneous
  Country: RO (occurrence: RO)
  Receive Date: 20200701
  Receipt Date: 20200701
  Transmission Date: 20201103
  Serious: Yes (Other)
  Sender: FDA-Public Use
  Company Number: RO-FRESENIUS KABI-FK202006627

PATIENT
  Age: 53 Year
  Sex: Male

DRUGS (6)
  1. OXALIPLATIN (MANUFACTURER UNKNOWN) [Suspect]
     Active Substance: OXALIPLATIN
     Indication: RECTAL HAEMORRHAGE
     Dosage: OXALIPLATIN 85 MG/M2 IV ON DAY 1
     Route: 042
  2. LEUCOVORIN CALCIUM (MANUFACTURER UNKNOWN) [Suspect]
     Active Substance: LEUCOVORIN CALCIUM
     Indication: RECTAL HAEMORRHAGE
     Dosage: 200 MG/M2 ON DAYS 1 AND 2)
     Route: 042
  3. FLUOROURACIL. [Suspect]
     Active Substance: FLUOROURACIL
     Indication: RECTAL HAEMORRHAGE
     Dosage: 400 MG/M2 IV BOLUS FOLLOWED BY 600 MG/M2 IV 22?HOUR CONTINUOUS INFUSION ON DAYS 1 AND 2
     Route: 040
  4. BEVACIZUMAB. [Suspect]
     Active Substance: BEVACIZUMAB
     Dosage: DOSE 2 (7.5 MG/KG EVERY THREE WEEKS),
     Route: 065
  5. BEVACIZUMAB. [Suspect]
     Active Substance: BEVACIZUMAB
     Indication: RECTAL HAEMORRHAGE
     Dosage: (5 MG/KG) ON A TWO?WEEK BEGAN,
     Route: 065
  6. CAPECITABINE. [Suspect]
     Active Substance: CAPECITABINE
     Indication: RECTAL HAEMORRHAGE
     Dosage: (1000 MG/M2 DAY 1 TO 14)
     Route: 065

REACTIONS (1)
  - Neuropathy peripheral [Unknown]
